FAERS Safety Report 6235693-X (Version None)
Quarter: 2009Q2

REPORT INFORMATION
  Report Type: 
  Country: None (occurrence: None)
  Receive Date: 20090618
  Receipt Date: 20090610
  Transmission Date: 20091009
  Serious: Yes (Hospitalization, Other)
  Sender: FDA-Public Use
  Company Number: GB-ELI_LILLY_AND_COMPANY-GB200905001550

PATIENT
  Sex: Male
  Weight: 123 kg

DRUGS (13)
  1. BYETTA [Suspect]
     Indication: TYPE 2 DIABETES MELLITUS
     Dosage: 5 MG, UNK
     Route: 058
     Dates: start: 20090323, end: 20090427
  2. BYETTA [Suspect]
     Dosage: 10 MG, UNK
     Dates: start: 20090401
  3. IRBESARTAN [Concomitant]
     Dosage: 150 MG, UNK
     Route: 048
  4. ALLOPURINOL [Concomitant]
     Dosage: 200 MG, UNK
     Route: 048
  5. GABAPENTIN [Concomitant]
     Route: 048
  6. WARFARIN SODIUM [Concomitant]
     Route: 048
  7. SIMVASTATIN [Concomitant]
     Dosage: 40 MG, DAILY (1/D)
     Route: 048
  8. DIGOXIN [Concomitant]
     Indication: ANGINA UNSTABLE
  9. ASPIRIN [Concomitant]
     Dosage: 75 MG, UNK
  10. GLICLAZIDE [Concomitant]
     Dosage: 80 MG, UNK
  11. SITAGLIPTIN [Concomitant]
     Dosage: 100 MG, DAILY (1/D)
  12. LISINOPRIL [Concomitant]
     Dosage: 25 MG, UNK
  13. BISOPROLOL [Concomitant]
     Dosage: UNK, DAILY (1/D)

REACTIONS (1)
  - ANGINA PECTORIS [None]
